FAERS Safety Report 11420090 (Version 1)
Quarter: 2015Q3

REPORT INFORMATION
  Report Type: Spontaneous
  Country: JP (occurrence: JP)
  Receive Date: 20150826
  Receipt Date: 20150826
  Transmission Date: 20151125
  Serious: Yes (Other)
  Sender: FDA-Public Use
  Company Number: JP-GLAXOSMITHKLINE INC.-JP2015JPN067750

PATIENT
  Sex: Female

DRUGS (3)
  1. VOTRIENT [Suspect]
     Active Substance: PAZOPANIB HYDROCHLORIDE
     Indication: ANGIOSARCOMA
     Dosage: 10 MG, 1D
     Dates: start: 20150309, end: 201505
  2. KEPPRA [Suspect]
     Active Substance: LEVETIRACETAM
     Route: 065
  3. VANCOMYCIN [Suspect]
     Active Substance: VANCOMYCIN
     Route: 065

REACTIONS (2)
  - White blood cell count decreased [Recovered/Resolved]
  - Pancytopenia [Unknown]
